FAERS Safety Report 11838615 (Version 1)
Quarter: 2015Q4

REPORT INFORMATION
  Report Type: Spontaneous
  Country: US (occurrence: US)
  Receive Date: 20151215
  Receipt Date: 20151215
  Transmission Date: 20160305
  Serious: No
  Sender: FDA-Public Use
  Company Number: US-SA-2015SA077784

PATIENT
  Sex: Male

DRUGS (2)
  1. THYROGEN [Suspect]
     Active Substance: THYROTROPIN ALFA
     Route: 065
  2. IODINE-131 [Suspect]
     Active Substance: IODINE I-131
     Route: 065

REACTIONS (2)
  - Gastric disorder [Unknown]
  - Food intolerance [Unknown]
